FAERS Safety Report 23831793 (Version 1)
Quarter: 2024Q2

REPORT INFORMATION
  Report Type: Spontaneous
  Country: US (occurrence: None)
  Receive Date: 20240507
  Receipt Date: 20240507
  Transmission Date: 20240716
  Serious: Yes (Life-Threatening, Hospitalization)
  Sender: FDA-Public Use
  Company Number: None

PATIENT
  Age: 48 Year
  Sex: Female
  Weight: 68.5 kg

DRUGS (1)
  1. SODIUM POLYSTYRENE SULFONATE [Suspect]
     Active Substance: SODIUM POLYSTYRENE SULFONATE
     Dosage: OTHER FREQUENCY : TWICE A WEEK;?OTHER ROUTE : PER G TUBE;?
     Route: 050

REACTIONS (4)
  - Sepsis [None]
  - Intestinal ischaemia [None]
  - Gastrointestinal necrosis [None]
  - Intestinal perforation [None]

NARRATIVE: CASE EVENT DATE: 20240506
